FAERS Safety Report 6637048-2 (Version None)
Quarter: 2010Q1

REPORT INFORMATION
  Report Type: 
  Country: None (occurrence: None)
  Receive Date: 20100301
  Receipt Date: 20090223
  Transmission Date: 20100710
  Serious: Yes (Other)
  Sender: FDA-Public Use
  Company Number: RB-9959-2009

PATIENT
  Age: 1 Day
  Sex: Male
  Weight: 3.9 kg

DRUGS (2)
  1. SUBOXONE [Suspect]
     Indication: DRUG DEPENDENCE
     Dosage: 16 MG TRANSPLACENTAL
     Route: 064
     Dates: start: 20080401, end: 20080612
  2. SUBUTEX [Suspect]
     Indication: DRUG DEPENDENCE
     Dosage: 8 MG BID TRANSPLACENTAL
     Route: 064
     Dates: start: 20080613, end: 20090107

REACTIONS (1)
  - DRUG WITHDRAWAL SYNDROME NEONATAL [None]
